FAERS Safety Report 5197380-9 (Version None)
Quarter: 2007Q1

REPORT INFORMATION
  Report Type: 
  Country: None (occurrence: None)
  Receive Date: 20070103
  Receipt Date: 20061227
  Transmission Date: 20070707
  Serious: Yes (Other)
  Sender: FDA-Public Use
  Company Number: PHNU2006DE03918

PATIENT
  Sex: Female
  Weight: 71 kg

DRUGS (3)
  1. ZOMETA [Suspect]
     Indication: METASTASES TO BONE
     Dosage: 4 MG, EVERY MONTH
     Dates: start: 20060911
  2. ZOMETA [Suspect]
     Dosage: 4 MG, ONCE/SINGLE
     Dates: start: 20061120, end: 20061120
  3. AROMASIN [Concomitant]
     Indication: BREAST CANCER METASTATIC
     Route: 048

REACTIONS (4)
  - BACK PAIN [None]
  - LOSS OF CONSCIOUSNESS [None]
  - NAUSEA [None]
  - RESPIRATORY ARREST [None]
